FAERS Safety Report 5533603-1 (Version None)
Quarter: 2007Q4

REPORT INFORMATION
  Report Type: 
  Country: None (occurrence: None)
  Receive Date: 20071129
  Receipt Date: 20071115
  Transmission Date: 20080405
  Serious: Yes (Other)
  Sender: FDA-Public Use
  Company Number: 230093J07USA

PATIENT
  Age: 37 Year
  Sex: Female

DRUGS (4)
  1. REBIF [Suspect]
     Indication: MULTIPLE SCLEROSIS
     Dosage: 44 MCG, 3 IN 1 WEEKS; SUBCUTANEOUS
     Route: 058
     Dates: start: 20050401, end: 20070502
  2. GONAL-F [Suspect]
     Indication: INFERTILITY FEMALE
     Dosage: NOT REPORTED, NOT REPORTED, NOT REPORTED
     Dates: start: 20070401, end: 20070401
  3. LETROZOLE [Suspect]
     Dosage: NOT REPORTED, NOT REPORTED, NOT REPORTED
     Dates: start: 20070401, end: 20070401
  4. MULTI-VITAMINS [Concomitant]

REACTIONS (4)
  - CAESAREAN SECTION [None]
  - DRUG EXPOSURE DURING PREGNANCY [None]
  - MULTIPLE PREGNANCY [None]
  - PREMATURE BABY [None]
